FAERS Safety Report 5084732-0 (Version None)
Quarter: 2006Q3

REPORT INFORMATION
  Report Type: 
  Country: None (occurrence: None)
  Receive Date: 20060815
  Receipt Date: 20060731
  Transmission Date: 20061208
  Serious: Yes (Hospitalization, Other)
  Sender: FDA-Public Use
  Company Number: 2006AL002049

PATIENT
  Sex: Male

DRUGS (5)
  1. ENULOSE [Suspect]
     Indication: CONSTIPATION
     Dosage: PO
     Route: 048
     Dates: start: 20050411, end: 20050414
  2. DOTHIEPIN HYDROCHLORIDE [Concomitant]
  3. LITHIUM CARBONATE [Concomitant]
  4. DIAZEPAM [Concomitant]
  5. VENLAFAXINE HCL [Concomitant]

REACTIONS (1)
  - FAECALOMA [None]
